FAERS Safety Report 25363282 (Version 1)
Quarter: 2025Q2

REPORT INFORMATION
  Report Type: Spontaneous
  Country: SK (occurrence: SK)
  Receive Date: 20250527
  Receipt Date: 20250527
  Transmission Date: 20250717
  Serious: Yes (Death, Other)
  Sender: MYLAN
  Company Number: SK-SANDOZ-SDZ2025SK031918

PATIENT
  Age: 65 Year
  Sex: Male

DRUGS (13)
  1. LENALIDOMIDE [Suspect]
     Active Substance: LENALIDOMIDE
     Indication: Plasma cell myeloma
  2. DEXAMETHASONE [Suspect]
     Active Substance: DEXAMETHASONE
     Indication: Plasma cell myeloma
  3. BORTEZOMIB [Suspect]
     Active Substance: BORTEZOMIB
     Indication: Plasma cell myeloma
  4. DEXAMETHASONE [Suspect]
     Active Substance: DEXAMETHASONE
     Indication: Plasma cell myeloma
  5. BORTEZOMIB [Suspect]
     Active Substance: BORTEZOMIB
     Indication: Plasma cell myeloma
  6. TALQUETAMAB [Suspect]
     Active Substance: TALQUETAMAB
     Indication: Plasma cell myeloma
  7. POMALIDOMIDE [Suspect]
     Active Substance: POMALIDOMIDE
  8. DEXAMETHASONE [Suspect]
     Active Substance: DEXAMETHASONE
  9. THALIDOMIDE [Suspect]
     Active Substance: THALIDOMIDE
  10. CARFILZOMIB [Suspect]
     Active Substance: CARFILZOMIB
  11. LENALIDOMIDE [Suspect]
     Active Substance: LENALIDOMIDE
  12. DARATUMUMAB [Suspect]
     Active Substance: DARATUMUMAB
  13. DEXAMETHASONE [Suspect]
     Active Substance: DEXAMETHASONE

REACTIONS (3)
  - Death [Fatal]
  - Pancytopenia [Unknown]
  - Disease progression [Unknown]

NARRATIVE: CASE EVENT DATE: 20241201
